FAERS Safety Report 5350776-4 (Version None)
Quarter: 2007Q2

REPORT INFORMATION
  Report Type: 
  Country: None (occurrence: None)
  Receive Date: 20070608
  Receipt Date: 20070530
  Transmission Date: 20071010
  Serious: Yes (Hospitalization)
  Sender: FDA-Public Use
  Company Number: ID-ROCHE-499869

PATIENT
  Age: 60 Year
  Sex: Female

DRUGS (3)
  1. BONIVA [Suspect]
     Indication: OSTEOPOROSIS POSTMENOPAUSAL
     Route: 048
     Dates: start: 20070502, end: 20070502
  2. CELEBREX [Concomitant]
     Indication: PAIN
     Route: 048
  3. NEXIUM [Concomitant]
     Route: 048

REACTIONS (2)
  - GASTRITIS [None]
  - STOMATITIS [None]
